FAERS Safety Report 6666349-7 (Version None)
Quarter: 2010Q2

REPORT INFORMATION
  Report Type: 
  Country: None (occurrence: None)
  Receive Date: 20100402
  Receipt Date: 20100330
  Transmission Date: 20101027
  Serious: Yes (Death)
  Sender: FDA-Public Use
  Company Number: US-GILEAD-2010-0027950

PATIENT
  Sex: Female
  Weight: 49.032 kg

DRUGS (14)
  1. LETAIRIS [Suspect]
     Indication: PULMONARY ARTERIAL HYPERTENSION
     Route: 048
     Dates: start: 20080801, end: 20100314
  2. LETAIRIS [Suspect]
     Route: 048
     Dates: start: 20070817, end: 20080601
  3. VENTAVIS [Concomitant]
  4. NORVASC [Concomitant]
  5. TOPROLOL [Concomitant]
  6. SENSIPAR [Concomitant]
  7. DIGOXIN [Concomitant]
  8. EPOGEN [Concomitant]
  9. AMBIEN [Concomitant]
  10. MOTRIN [Concomitant]
  11. NEXIUM [Concomitant]
  12. RENAGEL [Concomitant]
  13. PHOSLO [Concomitant]
  14. ZOLOFT [Concomitant]

REACTIONS (7)
  - DEATH [None]
  - DYSPNOEA PAROXYSMAL NOCTURNAL [None]
  - EXERCISE TOLERANCE DECREASED [None]
  - HEADACHE [None]
  - HYPOTENSION [None]
  - ORTHOPNOEA [None]
  - VISION BLURRED [None]
